FAERS Safety Report 4748677-5 (Version None)
Quarter: 2005Q3

REPORT INFORMATION
  Report Type: 
  Country: None (occurrence: None)
  Receive Date: 20050817
  Receipt Date: 20050808
  Transmission Date: 20060218
  Serious: Yes (Other)
  Sender: FDA-Public Use
  Company Number: 216625

PATIENT
  Age: 73 Year
  Sex: Female
  Weight: 74.8 kg

DRUGS (5)
  1. XOLAIR [Suspect]
     Indication: ASTHMA
     Dosage: 300 MG, Q2W, SUBCUTANEOUS
     Route: 058
     Dates: start: 20040518
  2. AZMACORT [Concomitant]
  3. ADVAIR DISKUS 100/50 [Concomitant]
  4. ZYRTEC [Concomitant]
  5. LOVENOX [Concomitant]

REACTIONS (2)
  - FALL [None]
  - ROTATOR CUFF SYNDROME [None]
